FAERS Safety Report 16710919 (Version 1)
Quarter: 2019Q3

REPORT INFORMATION
  Report Type: Report from Study
  Country: CA (occurrence: CA)
  Receive Date: 20190816
  Receipt Date: 20190816
  Transmission Date: 20191004
  Serious: Yes (Hospitalization, Other)
  Sender: FDA-Public Use
  Company Number: CA-MYLANLABS-2019M1074254

PATIENT
  Age: 25 Year
  Sex: Male

DRUGS (3)
  1. CLOZAPINE. [Suspect]
     Active Substance: CLOZAPINE
     Indication: SCHIZOAFFECTIVE DISORDER
     Dosage: 12.5 MILLIGRAM
     Route: 065
     Dates: start: 201512
  2. CLOZAPINE. [Suspect]
     Active Substance: CLOZAPINE
     Dosage: ON DAY 12, CLOZAPINE WAS RESUMED AND TITRATION WAS REINITIATED TO 200 MG WITHIN 3 DAYS
     Route: 065
  3. CLOZAPINE. [Suspect]
     Active Substance: CLOZAPINE
     Dosage: ON DAY 9; TEMPORARY WITHHELD FOR 2 NIGHTS
     Route: 065

REACTIONS (2)
  - Off label use [Unknown]
  - Myocarditis [Recovered/Resolved]
